FAERS Safety Report 9149921 (Version 1)
Quarter: 2013Q1

REPORT INFORMATION
  Report Type: Spontaneous
  Country: US (occurrence: None)
  Receive Date: 20130129
  Receipt Date: 20130129
  Transmission Date: 20140127
  Serious: Yes (Other)
  Sender: FDA-Public Use
  Company Number: US-1196315

PATIENT
  Age: 72 Year
  Sex: Female

DRUGS (1)
  1. TRAVATAN Z [Suspect]
     Dosage: OU
     Route: 047

REACTIONS (2)
  - Hallucination, auditory [None]
  - Restlessness [None]
